FAERS Safety Report 25312090 (Version 1)
Quarter: 2025Q2

REPORT INFORMATION
  Report Type: Spontaneous
  Country: US (occurrence: US)
  Receive Date: 20250510
  Receipt Date: 20250510
  Transmission Date: 20250716
  Serious: Yes (Hospitalization, Other)
  Sender: NOVO NORDISK
  Company Number: US-NOVOPROD-1338048

PATIENT
  Age: 44 Year
  Sex: Female
  Weight: 83.91 kg

DRUGS (9)
  1. WEGOVY [Suspect]
     Active Substance: SEMAGLUTIDE
     Indication: Obesity
     Dosage: 0.25 MG, QW
     Dates: start: 20230112, end: 20230202
  2. WEGOVY [Suspect]
     Active Substance: SEMAGLUTIDE
     Indication: Weight control
  3. WEGOVY [Suspect]
     Active Substance: SEMAGLUTIDE
     Indication: Obesity
     Dosage: 0.5 MG, QW
     Dates: start: 20230206, end: 20230220
  4. WEGOVY [Suspect]
     Active Substance: SEMAGLUTIDE
     Indication: Weight control
  5. WEGOVY [Suspect]
     Active Substance: SEMAGLUTIDE
     Indication: Obesity
     Dosage: 1 MG, QW
     Dates: start: 20230227, end: 20230327
  6. WEGOVY [Suspect]
     Active Substance: SEMAGLUTIDE
     Indication: Weight control
  7. WEGOVY [Suspect]
     Active Substance: SEMAGLUTIDE
     Indication: Obesity
     Dosage: 1.7 MG, QW
     Dates: start: 20230403, end: 20230501
  8. WEGOVY [Suspect]
     Active Substance: SEMAGLUTIDE
     Indication: Weight control
  9. OMEPRAZOLE [Concomitant]
     Active Substance: OMEPRAZOLE
     Indication: Dyspepsia
     Dates: start: 20221226

REACTIONS (7)
  - Malnutrition [Not Recovered/Not Resolved]
  - Dehydration [Not Recovered/Not Resolved]
  - Impaired gastric emptying [Not Recovered/Not Resolved]
  - Dyspepsia [Not Recovered/Not Resolved]
  - Nausea [Not Recovered/Not Resolved]
  - Constipation [Not Recovered/Not Resolved]
  - Off label use [Unknown]

NARRATIVE: CASE EVENT DATE: 20230101
